FAERS Safety Report 12065959 (Version 1)
Quarter: 2016Q1

REPORT INFORMATION
  Report Type: Spontaneous
  Country: US (occurrence: US)
  Receive Date: 20160210
  Receipt Date: 20160210
  Transmission Date: 20160526
  Serious: No
  Sender: FDA-Public Use
  Company Number: US-ALLERGAN-1525847US

PATIENT
  Sex: Female
  Weight: 68.48 kg

DRUGS (6)
  1. BOTOX COSMETIC [Suspect]
     Active Substance: ONABOTULINUMTOXINA
     Dosage: 2 UNITS, SINGLE
     Route: 030
     Dates: start: 20150908, end: 20150908
  2. METFORMIN [Concomitant]
     Active Substance: METFORMIN HYDROCHLORIDE
     Indication: TYPE 2 DIABETES MELLITUS
  3. BOTOX COSMETIC [Suspect]
     Active Substance: ONABOTULINUMTOXINA
     Indication: SKIN WRINKLING
     Dosage: 8 UNITS, SINGLE
     Route: 030
     Dates: start: 20150804, end: 20150804
  4. BOTOX COSMETIC [Suspect]
     Active Substance: ONABOTULINUMTOXINA
     Dosage: 4 UNITS, SINGLE
     Route: 030
     Dates: start: 20150821, end: 20150821
  5. APRACLONIDINE [Concomitant]
     Active Substance: APRACLONIDINE HYDROCHLORIDE
     Indication: EYELID PTOSIS
     Dosage: UNK UNK, BID
     Route: 047
     Dates: start: 2015
  6. BOTOX COSMETIC [Suspect]
     Active Substance: ONABOTULINUMTOXINA
     Indication: SKIN WRINKLING
     Dosage: 16 UNITS, SINGLE
     Route: 030
     Dates: start: 20150804, end: 20150804

REACTIONS (7)
  - Vision blurred [Recovered/Resolved]
  - Eyelid ptosis [Recovering/Resolving]
  - Eye pain [Recovering/Resolving]
  - Ocular hyperaemia [Not Recovered/Not Resolved]
  - Ocular discomfort [Unknown]
  - Corneal abrasion [Unknown]
  - Drug ineffective [Unknown]
